FAERS Safety Report 7837780-9 (Version None)
Quarter: 2011Q4

REPORT INFORMATION
  Report Type: 
  Country: None (occurrence: None)
  Receive Date: 20111024
  Receipt Date: 20100806
  Transmission Date: 20120403
  Serious: No
  Sender: FDA-Public Use
  Company Number: US-BAYER-201029895NA

PATIENT
  Age: 86 Year
  Sex: Female

DRUGS (3)
  1. PLAVIX [Concomitant]
     Dosage: 75 MG, QD
  2. AVAPRO [Concomitant]
     Dosage: 150 MG, QD
  3. CIPROFLOXACIN [Suspect]
     Indication: URINARY TRACT INFECTION
     Dosage: 500 MG, BID

REACTIONS (5)
  - DYSGEUSIA [None]
  - BLOOD PRESSURE DECREASED [None]
  - DRY MOUTH [None]
  - GAIT DISTURBANCE [None]
  - TOOTH DISORDER [None]
